FAERS Safety Report 7183121-2 (Version None)
Quarter: 2010Q4

REPORT INFORMATION
  Report Type: 
  Country: None (occurrence: None)
  Receive Date: 20101222
  Receipt Date: 20101215
  Transmission Date: 20110411
  Serious: Yes (Death, Other)
  Sender: FDA-Public Use
  Company Number: US-CELGENEUS-163-21880-10070685

PATIENT

DRUGS (3)
  1. REVLIMID [Suspect]
     Indication: LYMPHOMA
     Route: 048
  2. DEXAMETHASONE [Suspect]
     Indication: LYMPHOMA
     Route: 065
  3. RITUXIMAB [Suspect]
     Indication: LYMPHOMA
     Route: 065

REACTIONS (15)
  - ALANINE AMINOTRANSFERASE INCREASED [None]
  - ASPARTATE AMINOTRANSFERASE INCREASED [None]
  - DISEASE PROGRESSION [None]
  - FATIGUE [None]
  - HYPERURICAEMIA [None]
  - HYPOCALCAEMIA [None]
  - HYPOKALAEMIA [None]
  - HYPOPHOSPHATAEMIA [None]
  - LYMPHOMA [None]
  - MYOCARDITIS [None]
  - PNEUMONIA [None]
  - PULMONARY EMBOLISM [None]
  - RASH [None]
  - THROMBOCYTOPENIA [None]
  - TUMOUR FLARE [None]
